FAERS Safety Report 7276207-5 (Version None)
Quarter: 2010Q4

REPORT INFORMATION
  Report Type: 
  Country: None (occurrence: None)
  Receive Date: 20101206
  Receipt Date: 20100818
  Transmission Date: 20110411
  Serious: No
  Sender: FDA-Public Use
  Company Number: 2010SP045093

PATIENT
  Age: 37 Year
  Sex: Female

DRUGS (4)
  1. SAPHRIS [Suspect]
     Indication: BIPOLAR DISORDER
     Dosage: 10 MG;BID;PO
     Route: 048
     Dates: start: 20100812
  2. EFFEXOR XR [Concomitant]
  3. DOXIFEN [Concomitant]
  4. TRILEPTAL [Concomitant]

REACTIONS (5)
  - DROOLING [None]
  - HYPOAESTHESIA ORAL [None]
  - INCORRECT ROUTE OF DRUG ADMINISTRATION [None]
  - ORAL DISCOMFORT [None]
  - TONGUE DISCOLOURATION [None]
